FAERS Safety Report 7779006-0 (Version None)
Quarter: 2011Q3

REPORT INFORMATION
  Report Type: 
  Country: None (occurrence: None)
  Receive Date: 20110926
  Receipt Date: 20110922
  Transmission Date: 20111222
  Serious: Yes (Other)
  Sender: FDA-Public Use
  Company Number: AU-JNJFOC-20110909142

PATIENT
  Sex: Male

DRUGS (4)
  1. STELARA [Suspect]
     Indication: PRODUCT USED FOR UNKNOWN INDICATION
     Route: 058
     Dates: start: 20100329
  2. STELARA [Suspect]
     Route: 058
     Dates: start: 20110801
  3. NORVASC [Concomitant]
  4. COVERSYL PLUS [Concomitant]

REACTIONS (2)
  - CARDIAC DISORDER [None]
  - CORONARY ARTERY BYPASS [None]
